FAERS Safety Report 18386446 (Version 1)
Quarter: 2020Q4

REPORT INFORMATION
  Report Type: Spontaneous
  Country: US (occurrence: US)
  Receive Date: 20201014
  Receipt Date: 20201014
  Transmission Date: 20210114
  Serious: No
  Sender: FDA-Public Use
  Company Number: None

PATIENT
  Age: 76 Year
  Sex: Female
  Weight: 68.5 kg

DRUGS (19)
  1. VITAMIN C [Concomitant]
     Active Substance: ASCORBIC ACID
  2. METHOCARBAMOL. [Concomitant]
     Active Substance: METHOCARBAMOL
  3. POTASSIUM CHLORIDE. [Concomitant]
     Active Substance: POTASSIUM CHLORIDE
  4. CAPECITABINE. [Suspect]
     Active Substance: CAPECITABINE
     Indication: BREAST CANCER
     Route: 048
     Dates: start: 20201003
  5. COLACE [Concomitant]
     Active Substance: DOCUSATE SODIUM
  6. FOLIC ACID. [Concomitant]
     Active Substance: FOLIC ACID
  7. TRAMADOL. [Concomitant]
     Active Substance: TRAMADOL
  8. IRON UP [Concomitant]
  9. COUMADIN [Suspect]
     Active Substance: WARFARIN SODIUM
  10. PROBIOTIC [Concomitant]
     Active Substance: PROBIOTICS NOS
  11. COUMADIN [Concomitant]
     Active Substance: WARFARIN SODIUM
  12. METFORMIN [Concomitant]
     Active Substance: METFORMIN HYDROCHLORIDE
  13. METOPROLOL SUCCINATE. [Concomitant]
     Active Substance: METOPROLOL SUCCINATE
  14. FUROSEMIDE. [Concomitant]
     Active Substance: FUROSEMIDE
  15. VENTOLIN [Concomitant]
     Active Substance: ALBUTEROL SULFATE
  16. VITAMIN D3 [Concomitant]
     Active Substance: CHOLECALCIFEROL
  17. VITAMIN B12 [Concomitant]
     Active Substance: CYANOCOBALAMIN
  18. DILTIAZEM ER [Concomitant]
     Active Substance: DILTIAZEM
  19. ALBUTEROL. [Concomitant]
     Active Substance: ALBUTEROL

REACTIONS (3)
  - Nausea [None]
  - Epistaxis [None]
  - International normalised ratio decreased [None]

NARRATIVE: CASE EVENT DATE: 20201014
